FAERS Safety Report 22606146 (Version 1)
Quarter: 2023Q2

REPORT INFORMATION
  Report Type: Report from Study
  Country: US (occurrence: US)
  Receive Date: 20230615
  Receipt Date: 20230615
  Transmission Date: 20230721
  Serious: Yes (Other)
  Sender: FDA-Public Use
  Company Number: US-UCBSA-2023029834

PATIENT
  Age: 59 Year
  Sex: Female

DRUGS (1)
  1. CERTOLIZUMAB PEGOL [Suspect]
     Active Substance: CERTOLIZUMAB PEGOL
     Indication: Ankylosing spondylitis
     Dosage: MAINTENANCE DOSE 2 INJECTIONS EVERY 4 WEEKS, 400 MG (2 X200 MG/ML) SUBQ
     Route: 058
     Dates: start: 20230228

REACTIONS (4)
  - Ankylosing spondylitis [Not Recovered/Not Resolved]
  - Dry skin [Not Recovered/Not Resolved]
  - Therapeutic product effect incomplete [Not Recovered/Not Resolved]
  - Incorrect route of product administration [Unknown]

NARRATIVE: CASE EVENT DATE: 20230301
